FAERS Safety Report 7633556-6 (Version None)
Quarter: 2011Q3

REPORT INFORMATION
  Report Type: 
  Country: None (occurrence: None)
  Receive Date: 20110725
  Receipt Date: 20110706
  Transmission Date: 20111222
  Serious: Yes (Hospitalization)
  Sender: FDA-Public Use
  Company Number: US-GLAXOSMITHKLINE-A0789945A

PATIENT
  Age: 57 Year
  Sex: Male

DRUGS (5)
  1. GLYBURIDE [Concomitant]
  2. AVANDIA [Suspect]
     Indication: DIABETES MELLITUS
     Dosage: 4MG PER DAY
     Route: 048
     Dates: start: 20010201, end: 20060901
  3. LIPITOR [Concomitant]
  4. METFORMIN HCL [Concomitant]
  5. BENAZEPRIL HYDROCHLORIDE [Concomitant]

REACTIONS (2)
  - MYOCARDIAL INFARCTION [None]
  - CARDIAC FAILURE CONGESTIVE [None]
